FAERS Safety Report 7425948-5 (Version None)
Quarter: 2011Q2

REPORT INFORMATION
  Report Type: 
  Country: None (occurrence: None)
  Receive Date: 20110420
  Receipt Date: 20090306
  Transmission Date: 20111010
  Serious: Yes (Hospitalization, Other)
  Sender: FDA-Public Use
  Company Number: US-BAYER-201039632NA

PATIENT
  Age: 54 Year
  Sex: Male
  Weight: 104.31 kg

DRUGS (14)
  1. LIPITOR [Concomitant]
     Indication: HYPERLIPIDAEMIA
     Dosage: UNK
     Dates: start: 20040727
  2. KEFLEX [Concomitant]
     Dosage: 3 GM
     Dates: start: 20040723
  3. TOPROL-XL [Concomitant]
     Dosage: 50 MG, QD
     Route: 048
  4. LIDOCAINE [Concomitant]
     Dosage: 100 MG
     Dates: start: 20040723
  5. LASIX [Concomitant]
     Dosage: 40 MG, UNK
  6. PAPAVERINE [Concomitant]
     Dosage: 60 MG
     Dates: start: 20040723
  7. INSULIN [Concomitant]
     Indication: DIABETES MELLITUS
     Dosage: UNK
     Dates: start: 20040727
  8. MANNITOL [Concomitant]
     Dosage: 12.5 GM
  9. BICARBONAT [Concomitant]
     Dosage: 100 MEQ
     Dates: start: 20040723
  10. CELEBREX [Concomitant]
     Dosage: 100MG
     Route: 048
  11. NEXIUM [Concomitant]
     Route: 048
  12. TRASYLOL [Suspect]
     Indication: CORONARY ARTERY BYPASS
     Dosage: LOADING DOSE:200 ML PER CARDIOPULMONARY PUMP PRIME AND 200 ML INTRAVENOUSLY PER ANESTHESIA.
     Route: 042
     Dates: start: 20040723, end: 20040723
  13. HEPARIN [Concomitant]
     Dosage: 420 MG, UNK
  14. ROCEPHIN [Concomitant]
     Dosage: 1 GM

REACTIONS (16)
  - DEAFNESS [None]
  - ARTERIOSCLEROSIS [None]
  - MYOCARDIAL INFARCTION [None]
  - FEAR [None]
  - ANXIETY [None]
  - UNEVALUABLE EVENT [None]
  - CEREBROVASCULAR ACCIDENT [None]
  - RENAL INJURY [None]
  - MULTI-ORGAN FAILURE [None]
  - STRESS [None]
  - INJURY [None]
  - RENAL IMPAIRMENT [None]
  - RENAL FAILURE [None]
  - HYPOAESTHESIA [None]
  - EMOTIONAL DISTRESS [None]
  - PAIN [None]
